FAERS Safety Report 5946114-6 (Version None)
Quarter: 2008Q4

REPORT INFORMATION
  Report Type: 
  Country: None (occurrence: None)
  Receive Date: 20081106
  Receipt Date: 20081106
  Transmission Date: 20090506
  Serious: No
  Sender: FDA-Public Use
  Company Number: None

PATIENT
  Age: 59 Year
  Sex: Male
  Weight: 126 kg

DRUGS (1)
  1. GALANTAMINE HYDROBROMIDE [Suspect]
     Indication: DEMENTIA
     Dosage: 16 MG EVERY DAY PO
     Route: 048
     Dates: start: 20070925, end: 20080226

REACTIONS (2)
  - DIZZINESS [None]
  - DRUG INTERACTION [None]
